FAERS Safety Report 5836146-0 (Version None)
Quarter: 2008Q3

REPORT INFORMATION
  Report Type: 
  Country: None (occurrence: None)
  Receive Date: 20080805
  Receipt Date: 20080722
  Transmission Date: 20090109
  Serious: Yes (Life-Threatening, Hospitalization)
  Sender: FDA-Public Use
  Company Number: GP-08-07-0008

PATIENT
  Age: 46 Year
  Sex: Female

DRUGS (8)
  1. FLUCONAZOLE [Suspect]
     Dosage: 200 MG DAILY
  2. CITALOPRAM HYDROBROMIDE [Suspect]
     Indication: DEPRESSION
     Dosage: 20 MG DAILY
  3. DAPSONE [Concomitant]
  4. ACYCLOVIR [Concomitant]
  5. ESOMEPRAZOLE  20 MG [Concomitant]
  6. DEXAMETHASONE 2.5 MG [Concomitant]
  7. ZOLPIDEM CONTROLLED RELEASE 12.5 MG [Concomitant]
  8. LOSARTAN 50 MG/HYDROCHLOROTHIAZIDE 123.5 MG [Concomitant]

REACTIONS (5)
  - CONVULSION [None]
  - DELIRIUM [None]
  - DRUG INTERACTION [None]
  - LOSS OF CONSCIOUSNESS [None]
  - THERAPEUTIC AGENT TOXICITY [None]
